FAERS Safety Report 16332213 (Version 1)
Quarter: 2019Q2

REPORT INFORMATION
  Report Type: Report from Study
  Country: US (occurrence: US)
  Receive Date: 20190520
  Receipt Date: 20190520
  Transmission Date: 20190711
  Serious: Yes (Other)
  Sender: FDA-Public Use
  Company Number: US-SA-2019SA107090

PATIENT
  Age: 81 Year
  Sex: Male

DRUGS (2)
  1. NOVOLOG [Suspect]
     Active Substance: INSULIN ASPART
     Dosage: 10 U, TID
  2. INSULIN GLARGINE [Suspect]
     Active Substance: INSULIN GLARGINE
     Dosage: UNK, QD

REACTIONS (3)
  - Product dose omission [Unknown]
  - Cerebrovascular accident [Unknown]
  - Inability to afford medication [Unknown]
